FAERS Safety Report 4296929-8 (Version None)
Quarter: 2004Q1

REPORT INFORMATION
  Report Type: 
  Country: None (occurrence: None)
  Receive Date: 20040213
  Receipt Date: 20040204
  Transmission Date: 20041129
  Serious: Yes (Hospitalization)
  Sender: FDA-Public Use
  Company Number: 2004-02-0296

PATIENT
  Age: 63 Year
  Sex: Male

DRUGS (5)
  1. INTRON A [Suspect]
     Indication: HEPATITIS C
     Dosage: SEE IMAGE
     Dates: start: 20020401, end: 20020401
  2. INTRON A [Suspect]
     Indication: HEPATITIS C
     Dosage: SEE IMAGE
     Dates: start: 20020401, end: 20021001
  3. INTRON A [Suspect]
     Indication: HEPATITIS C
     Dosage: SEE IMAGE
     Dates: start: 20020401
  4. INTRON A [Suspect]
     Indication: HEPATITIS C
     Dosage: SEE IMAGE
     Dates: start: 20030305
  5. REBETOL [Suspect]
     Indication: HEPATITIS C
     Dates: start: 20020401, end: 20021001

REACTIONS (4)
  - ALANINE AMINOTRANSFERASE INCREASED [None]
  - ASPARTATE AMINOTRANSFERASE INCREASED [None]
  - HEPATITIS C VIRUS [None]
  - IDIOPATHIC THROMBOCYTOPENIC PURPURA [None]
